FAERS Safety Report 16505640 (Version 2)
Quarter: 2020Q1

REPORT INFORMATION
  Report Type: Report from Study
  Country: US (occurrence: US)
  Receive Date: 20190701
  Receipt Date: 20200114
  Transmission Date: 20200409
  Serious: No
  Sender: FDA-Public Use
  Company Number: US-SA-2019SA176969

PATIENT
  Age: 78 Year
  Sex: Female

DRUGS (6)
  1. CAMPHOR [Concomitant]
     Active Substance: CAMPHOR
     Dosage: UNK
     Dates: start: 20190930
  2. DUPILUMAB [Suspect]
     Active Substance: DUPILUMAB
     Indication: DERMATITIS ATOPIC
     Dosage: 600 MG, 1X
     Route: 058
     Dates: start: 20190325, end: 20190325
  3. PREDNISONE. [Concomitant]
     Active Substance: PREDNISONE
     Indication: CUSHING^S SYNDROME
  4. EPICERAM [Concomitant]
     Active Substance: DEVICE
     Dosage: UNK
     Dates: start: 20190219, end: 20190930
  5. EUCRISA [Concomitant]
     Active Substance: CRISABOROLE
     Dosage: UNK
     Dates: start: 20190219
  6. DUPILUMAB [Suspect]
     Active Substance: DUPILUMAB
     Dosage: 1 DF, QOW
     Route: 058

REACTIONS (2)
  - Pruritus [Unknown]
  - Headache [Not Recovered/Not Resolved]
